FAERS Safety Report 5456470-3 (Version None)
Quarter: 2007Q3

REPORT INFORMATION
  Report Type: 
  Country: None (occurrence: None)
  Receive Date: 20070918
  Receipt Date: 20070903
  Transmission Date: 20080115
  Serious: Yes (Hospitalization, Other)
  Sender: FDA-Public Use
  Company Number: FR-ELI_LILLY_AND_COMPANY-FR200705006028

PATIENT
  Age: 57 Year
  Sex: Female

DRUGS (1)
  1. OPTRUMA [Suspect]
     Dosage: 60 MG, DAILY (1/D)
     Route: 048
     Dates: start: 20030101, end: 20070510

REACTIONS (1)
  - ENDOMETRIAL CANCER [None]
